FAERS Safety Report 5534168-0 (Version None)
Quarter: 2007Q4

REPORT INFORMATION
  Report Type: 
  Country: None (occurrence: None)
  Receive Date: 20071129
  Receipt Date: 20071129
  Transmission Date: 20080405
  Serious: Yes (Hospitalization)
  Sender: FDA-Public Use
  Company Number: None

PATIENT
  Age: 75 Year
  Sex: Male

DRUGS (1)
  1. FUROSEMIDE [Suspect]
     Indication: CARDIAC FAILURE CONGESTIVE
     Dosage: 40MG EVERY DAY PO
     Route: 048
     Dates: start: 19990204, end: 20071122

REACTIONS (5)
  - ASTHENIA [None]
  - DIZZINESS [None]
  - ELECTROCARDIOGRAM CHANGE [None]
  - HYPOKALAEMIA [None]
  - HYPONATRAEMIA [None]
